FAERS Safety Report 7997832-X (Version None)
Quarter: 2011Q4

REPORT INFORMATION
  Report Type: 
  Country: None (occurrence: None)
  Receive Date: 20111221
  Receipt Date: 20111208
  Transmission Date: 20120403
  Serious: Yes (Hospitalization, Other)
  Sender: FDA-Public Use
  Company Number: PHHY2010CA65029

PATIENT
  Sex: Female

DRUGS (3)
  1. SANDOSTATIN LAR [Suspect]
     Indication: NEUROENDOCRINE CARCINOMA
     Dosage: 30 MG, EVERY 4 WEEKS
     Route: 030
     Dates: start: 20100805, end: 20101221
  2. CHEMOTHERAPEUTICS NOS [Concomitant]
  3. SANDOSTATIN LAR [Suspect]
     Indication: HEPATIC NEOPLASM MALIGNANT

REACTIONS (7)
  - PROCEDURAL COMPLICATION [None]
  - NEOPLASM MALIGNANT [None]
  - WEIGHT DECREASED [None]
  - NAUSEA [None]
  - ASTHENIA [None]
  - TUMOUR HAEMORRHAGE [None]
  - FATIGUE [None]
